FAERS Safety Report 14338027 (Version 1)
Quarter: 2017Q4

REPORT INFORMATION
  Report Type: Spontaneous
  Country: US (occurrence: US)
  Receive Date: 20171229
  Receipt Date: 20171229
  Transmission Date: 20180321
  Serious: No
  Sender: FDA-Public Use
  Company Number: US-BIOGEN-2017BI00501992

PATIENT
  Age: 27 Year
  Sex: Female

DRUGS (1)
  1. TECFIDERA [Suspect]
     Active Substance: DIMETHYL FUMARATE
     Indication: MULTIPLE SCLEROSIS
     Route: 065

REACTIONS (11)
  - Abnormal dreams [Unknown]
  - Burning sensation [Unknown]
  - Gastric disorder [Unknown]
  - Rash macular [Unknown]
  - Fatigue [Unknown]
  - Sleep disorder [Unknown]
  - Frustration tolerance decreased [Unknown]
  - Flushing [Unknown]
  - Neck pain [Unknown]
  - Alopecia [Unknown]
  - Back pain [Unknown]
